FAERS Safety Report 7722302-3 (Version None)
Quarter: 2011Q3

REPORT INFORMATION
  Report Type: 
  Country: None (occurrence: None)
  Receive Date: 20110831
  Receipt Date: 20110822
  Transmission Date: 20111222
  Serious: Yes (Other)
  Sender: FDA-Public Use
  Company Number: US-BRACCO-003741

PATIENT
  Sex: Female
  Weight: 109 kg

DRUGS (47)
  1. EVISTA [Concomitant]
  2. NEPHROCAPS [Concomitant]
  3. SENSIPAR [Concomitant]
  4. MIACALCIN [Concomitant]
  5. PARICALCITOL [Concomitant]
  6. HUMALOG [Concomitant]
  7. IBUPROFEN [Concomitant]
  8. COLACE [Concomitant]
  9. LORATADINE [Concomitant]
  10. CONTRAST MEDIA [Suspect]
     Indication: NUCLEAR MAGNETIC RESONANCE IMAGING
     Dosage: STATED BY PT IN A PHYSICIAN'S NOTE; NO RADIOLOGY REPORT; NOT STATED IN PFS; UNKNOWN
     Route: 065
     Dates: start: 20070801, end: 20070801
  11. PHOSLO [Concomitant]
  12. PRILOSEC [Concomitant]
  13. RESTORIL [Concomitant]
  14. FERROUS SULFATE TAB [Concomitant]
  15. PLAVIX [Concomitant]
  16. MAGNEVIST [Suspect]
     Indication: NUCLEAR MAGNETIC RESONANCE IMAGING
     Route: 065
     Dates: start: 19980824, end: 19980824
  17. MAGNEVIST [Suspect]
     Route: 065
     Dates: start: 19980824, end: 19980824
  18. SYNTHROID [Concomitant]
  19. EPOGEN [Concomitant]
  20. EPOGEN [Concomitant]
  21. CONTRAST MEDIA [Suspect]
     Indication: NUCLEAR MAGNETIC RESONANCE IMAGING BRAIN
     Route: 065
     Dates: start: 19980706, end: 19980706
  22. TRICOR [Concomitant]
  23. HOMATROPINE [Concomitant]
  24. ASPIRIN [Concomitant]
  25. PREDNISONE [Concomitant]
  26. TEMAZEPAM [Concomitant]
  27. PROAMATINE [Concomitant]
  28. DIATX [Concomitant]
  29. ZOCOR [Concomitant]
  30. LIPITOR [Concomitant]
  31. CELEBREX [Concomitant]
  32. CELLCEPT [Concomitant]
     Indication: KIDNEY TRANSPLANT REJECTION
  33. MULTIHANCE [Suspect]
     Indication: NUCLEAR MAGNETIC RESONANCE IMAGING
     Route: 042
     Dates: start: 20050707, end: 20050707
  34. TIMOLOL MALEATE [Concomitant]
  35. CILOSTAZOL [Concomitant]
  36. MULTIHANCE [Suspect]
     Indication: NUCLEAR MAGNETIC RESONANCE IMAGING ABDOMINAL
     Route: 042
     Dates: start: 20050707, end: 20050707
  37. LEVOTHYROXINE SODIUM [Concomitant]
  38. INSULIN [Concomitant]
  39. PROGRAF [Concomitant]
  40. RENAGEL [Concomitant]
  41. ZEMPLAR [Concomitant]
  42. VISIPAQUE [Concomitant]
     Indication: AORTOGRAM
     Route: 065
     Dates: start: 20050616, end: 20050616
  43. MAGNEVIST [Suspect]
     Indication: ANGIOGRAM
     Dates: start: 20020820, end: 20020820
  44. FLONASE [Concomitant]
  45. PERCOCET [Concomitant]
  46. ZOLOFT [Concomitant]
  47. SOLIVITO N [Concomitant]

REACTIONS (8)
  - NEPHROGENIC SYSTEMIC FIBROSIS [None]
  - ANXIETY [None]
  - PHYSICAL DISABILITY [None]
  - ACTIVITIES OF DAILY LIVING IMPAIRED [None]
  - ASTHENIA [None]
  - FEAR OF DISEASE [None]
  - EMOTIONAL DISTRESS [None]
  - QUALITY OF LIFE DECREASED [None]
